FAERS Safety Report 6610086-1 (Version None)
Quarter: 2010Q1

REPORT INFORMATION
  Report Type: 
  Country: None (occurrence: None)
  Receive Date: 20100219
  Receipt Date: 20100205
  Transmission Date: 20100710
  Serious: Yes (Life-Threatening)
  Sender: FDA-Public Use
  Company Number: 003967

PATIENT
  Sex: Female
  Weight: 90 kg

DRUGS (8)
  1. LACOSAMIDE [Suspect]
     Indication: STATUS EPILEPTICUS
     Dosage: ORAL AND IV: 200 TWICE A DAY (TOTAL DAILY DOSE DOSE: 400) INTRAVENOUS (NOT OTHERWISE SPECIFIED))
     Route: 048
     Dates: start: 20091218, end: 20100103
  2. LEVETIRACETAM [Suspect]
     Indication: EPILEPSY
     Dosage: INTRAVENOUS (NOT OTHERWISE SPECIFIED)
     Route: 042
     Dates: start: 20091214
  3. LEVETIRACETAM [Suspect]
     Indication: STATUS EPILEPTICUS
     Dosage: INTRAVENOUS (NOT OTHERWISE SPECIFIED)
     Route: 042
     Dates: start: 20091214
  4. ENOXAPARIN SODIUM [Concomitant]
  5. ARIXTRA [Concomitant]
  6. TURIXIN [Concomitant]
  7. VANCOMYCIN [Concomitant]
  8. METFORMIN HCL [Concomitant]

REACTIONS (1)
  - PANCYTOPENIA [None]
